FAERS Safety Report 23784711 (Version 2)
Quarter: 2025Q2

REPORT INFORMATION
  Report Type: Spontaneous
  Country: US (occurrence: US)
  Receive Date: 20240425
  Receipt Date: 20250423
  Transmission Date: 20250716
  Serious: No
  Sender: PFIZER
  Company Number: US-PFIZER INC-PV202400053008

PATIENT
  Age: 64 Year

DRUGS (1)
  1. PAXLOVID [Suspect]
     Active Substance: NIRMATRELVIR\RITONAVIR
     Indication: COVID-19 treatment

REACTIONS (8)
  - Nasal congestion [Unknown]
  - Dry mouth [Unknown]
  - Cough [Unknown]
  - Sleep apnoea syndrome [Unknown]
  - Poor quality sleep [Unknown]
  - Fatigue [Unknown]
  - Wheezing [Unknown]
  - Headache [Unknown]
